FAERS Safety Report 16904838 (Version 3)
Quarter: 2021Q1

REPORT INFORMATION
  Report Type: Report from Study
  Country: GB (occurrence: GB)
  Receive Date: 20191010
  Receipt Date: 20210303
  Transmission Date: 20210419
  Serious: Yes (Other)
  Sender: FDA-Public Use
  Company Number: GB-JNJFOC-20190728711

PATIENT
  Age: 66 Year
  Sex: Female

DRUGS (4)
  1. ORAMORPH [Concomitant]
     Active Substance: MORPHINE SULFATE
  2. STELARA [Suspect]
     Active Substance: USTEKINUMAB
     Indication: PSORIASIS
     Route: 058
     Dates: start: 20160222
  3. STELARA [Suspect]
     Active Substance: USTEKINUMAB
  4. MORPHINE [Concomitant]
     Active Substance: MORPHINE

REACTIONS (6)
  - Fall [Unknown]
  - Herpes ophthalmic [Unknown]
  - Psoriasis [Unknown]
  - Spinal fracture [Not Recovered/Not Resolved]
  - Blindness unilateral [Unknown]
  - Eye operation [Unknown]

NARRATIVE: CASE EVENT DATE: 20190716
